FAERS Safety Report 5463399-3 (Version None)
Quarter: 2007Q3

REPORT INFORMATION
  Report Type: 
  Country: None (occurrence: None)
  Receive Date: 20070920
  Receipt Date: 20070912
  Transmission Date: 20080115
  Serious: Yes (Other)
  Sender: FDA-Public Use
  Company Number: AU-ASTRAZENECA-2007AP05719

PATIENT
  Sex: Male

DRUGS (2)
  1. SEROQUEL [Suspect]
     Route: 048
     Dates: start: 20070101
  2. HALOPERIDOL INJECTIONS [Concomitant]
     Dates: start: 19770101

REACTIONS (1)
  - ISCHAEMIC CARDIOMYOPATHY [None]
